FAERS Safety Report 18359584 (Version 2)
Quarter: 2021Q3

REPORT INFORMATION
  Report Type: Spontaneous
  Country: US (occurrence: US)
  Receive Date: 20201008
  Receipt Date: 20210909
  Transmission Date: 20211014
  Serious: Yes (Other)
  Sender: FDA-Public Use
  Company Number: US-SA-2020SA276154

PATIENT
  Age: 56 Year
  Sex: Male

DRUGS (1)
  1. ZANTAC [Suspect]
     Active Substance: RANITIDINE HYDROCHLORIDE
     Indication: DYSPEPSIA
     Dosage: 150 MG, QW
     Dates: start: 200501, end: 201901

REACTIONS (3)
  - Bladder cancer stage II [Recovering/Resolving]
  - Prostatic disorder [Unknown]
  - Prostate cancer stage II [Recovering/Resolving]

NARRATIVE: CASE EVENT DATE: 20150101
